FAERS Safety Report 11279756 (Version 1)
Quarter: 2015Q3

REPORT INFORMATION
  Report Type: Report from Study
  Country: JP (occurrence: JP)
  Receive Date: 20150717
  Receipt Date: 20150717
  Transmission Date: 20151125
  Serious: Yes (Other)
  Sender: FDA-Public Use
  Company Number: PHJP2015JP012226

PATIENT
  Age: 31 Year
  Sex: Male

DRUGS (19)
  1. CLOZARIL [Interacting]
     Active Substance: CLOZAPINE
     Dosage: 100 MG, QD
     Route: 048
     Dates: start: 20111123, end: 20111124
  2. CLOZARIL [Interacting]
     Active Substance: CLOZAPINE
     Dosage: 300 MG, QD
     Route: 048
     Dates: start: 20120726, end: 20120905
  3. CLOZARIL [Interacting]
     Active Substance: CLOZAPINE
     Dosage: 300 MG, QD
     Route: 048
     Dates: start: 20121101
  4. SILECE [Concomitant]
     Active Substance: FLUNITRAZEPAM
     Indication: SCHIZOPHRENIA, UNDIFFERENTIATED TYPE
     Dosage: 2 MG, UNK
     Route: 048
     Dates: start: 20111201, end: 20120110
  5. CLOZARIL [Interacting]
     Active Substance: CLOZAPINE
     Dosage: 25 MG, QD
     Route: 048
     Dates: start: 20111115, end: 20111117
  6. CLOZARIL [Interacting]
     Active Substance: CLOZAPINE
     Dosage: 500 MG, QD
     Route: 048
     Dates: start: 20120107, end: 20120711
  7. CLOZARIL [Interacting]
     Active Substance: CLOZAPINE
     Dosage: 400 MG, QD
     Route: 048
     Dates: start: 20120712, end: 20120725
  8. CLOZARIL [Interacting]
     Active Substance: CLOZAPINE
     Dosage: 75 MG, QD
     Route: 048
     Dates: start: 20111121, end: 20111122
  9. CLOZARIL [Interacting]
     Active Substance: CLOZAPINE
     Dosage: 125 MG, QD
     Route: 048
     Dates: start: 20111125, end: 20111127
  10. CLOZARIL [Interacting]
     Active Substance: CLOZAPINE
     Dosage: 175 MG, QD
     Route: 048
     Dates: start: 20111201, end: 20111203
  11. CLOZARIL [Interacting]
     Active Substance: CLOZAPINE
     Dosage: 300 MG, QD
     Route: 048
     Dates: start: 20111208, end: 20111214
  12. CLOZARIL [Suspect]
     Active Substance: CLOZAPINE
     Indication: SCHIZOPHRENIA, UNDIFFERENTIATED TYPE
     Dosage: 12.5 MG, QD
     Route: 048
     Dates: start: 20111114, end: 20111114
  13. CLOZARIL [Interacting]
     Active Substance: CLOZAPINE
     Dosage: 200 MG, QD
     Route: 048
     Dates: start: 20111204, end: 20111207
  14. CLOZARIL [Interacting]
     Active Substance: CLOZAPINE
     Dosage: 400 MG, QD
     Route: 048
     Dates: start: 20111215, end: 20120106
  15. CLOZARIL [Interacting]
     Active Substance: CLOZAPINE
     Dosage: 400 MG, QD
     Route: 048
     Dates: start: 20120906, end: 20121017
  16. RISPERIDONE. [Interacting]
     Active Substance: RISPERIDONE
     Indication: SCHIZOPHRENIA, UNDIFFERENTIATED TYPE
     Dosage: 6 MG, QD
     Route: 048
     Dates: start: 20120405, end: 20120711
  17. CLOZARIL [Interacting]
     Active Substance: CLOZAPINE
     Dosage: 50 MG, QD
     Route: 048
     Dates: start: 20111118, end: 20111120
  18. CLOZARIL [Interacting]
     Active Substance: CLOZAPINE
     Dosage: 200 MG, QD
     Route: 048
     Dates: start: 20121018, end: 20121031
  19. CLOZARIL [Interacting]
     Active Substance: CLOZAPINE
     Dosage: 150 MG, QD
     Route: 048
     Dates: start: 20111128, end: 20111130

REACTIONS (4)
  - Drug interaction [Unknown]
  - Malaise [Unknown]
  - Drug ineffective [Unknown]
  - Somnolence [Recovered/Resolved]

NARRATIVE: CASE EVENT DATE: 201205
